FAERS Safety Report 15362404 (Version 1)
Quarter: 2018Q4

REPORT INFORMATION
  Report Type: Spontaneous
  Country: US (occurrence: US)
  Receive Date: 20180907
  Receipt Date: 20180907
  Transmission Date: 20190204
  Serious: Yes (Other)
  Sender: FDA-Public Use
  Company Number: US-PFIZER INC-2018358599

PATIENT
  Age: 81 Year
  Sex: Female

DRUGS (2)
  1. IMURAN [Suspect]
     Active Substance: AZATHIOPRINE
     Dosage: 50 MG, 2X/DAY
  2. XELJANZ XR [Suspect]
     Active Substance: TOFACITINIB CITRATE
     Dosage: 11 MG, DAILY

REACTIONS (4)
  - Anaemia [Unknown]
  - Urinary tract infection [Not Recovered/Not Resolved]
  - Chronic kidney disease [Unknown]
  - Interstitial lung disease [Unknown]
